FAERS Safety Report 9742001 (Version 2)
Quarter: 2013Q4

REPORT INFORMATION
  Report Type: Spontaneous
  Country: US (occurrence: US)
  Receive Date: 20131210
  Receipt Date: 20131210
  Transmission Date: 20140711
  Serious: No
  Sender: FDA-Public Use
  Company Number: US-PFIZER INC-2013315347

PATIENT
  Age: 15 Year
  Sex: Female

DRUGS (3)
  1. QUILLIVANT XR [Suspect]
     Dosage: 4 ML, 1X/DAY
     Dates: start: 20131025, end: 20131028
  2. VITAMIN D [Concomitant]
     Dosage: 1000 UNK, DAILY
     Route: 042
  3. PROTONIX [Concomitant]
     Dosage: UNK

REACTIONS (5)
  - Headache [Recovered/Resolved]
  - Nausea [Recovered/Resolved]
  - Tremor [Recovered/Resolved]
  - Dizziness [Recovered/Resolved]
  - Malaise [Recovered/Resolved]
